FAERS Safety Report 19117048 (Version 1)
Quarter: 2021Q2

REPORT INFORMATION
  Report Type: Spontaneous
  Country: US (occurrence: US)
  Receive Date: 20210409
  Receipt Date: 20210409
  Transmission Date: 20210717
  Serious: No
  Sender: FDA-Public Use
  Company Number: US-PFIZER INC-2018507726

PATIENT
  Age: 65 Year
  Sex: Female

DRUGS (2)
  1. LYRICA [Suspect]
     Active Substance: PREGABALIN
     Indication: FIBROMYALGIA
     Dosage: 100 MG THREE TIMES DAILY
     Route: 048
     Dates: start: 20181203
  2. LYRICA [Suspect]
     Active Substance: PREGABALIN
     Dosage: 100 MG THREE TIMES DAILY
     Route: 048
     Dates: start: 20191205

REACTIONS (1)
  - Pain [Unknown]
